FAERS Safety Report 16720761 (Version 2)
Quarter: 2019Q3

REPORT INFORMATION
  Report Type: Report from Study
  Country: TW (occurrence: TW)
  Receive Date: 20190820
  Receipt Date: 20190910
  Transmission Date: 20191005
  Serious: Yes (Death, Other)
  Sender: FDA-Public Use
  Company Number: TW-INCYTE CORPORATION-2019IN008029

PATIENT

DRUGS (107)
  1. JAKAVI [Suspect]
     Active Substance: RUXOLITINIB
     Dosage: 40 MG, UNK
     Route: 048
     Dates: start: 20180130, end: 20180426
  2. JAKAVI [Suspect]
     Active Substance: RUXOLITINIB
     Dosage: 5 MG, UNK
     Route: 048
     Dates: start: 20180430, end: 20180507
  3. ACYCLOVIR. [Concomitant]
     Active Substance: ACYCLOVIR
     Indication: HERPES ZOSTER
     Dosage: 750 MG, UNK
     Route: 042
     Dates: start: 20170518, end: 20190609
  4. AGRYLIN [Concomitant]
     Active Substance: ANAGRELIDE HYDROCHLORIDE
     Dosage: 1.5 MG, UNK
     Route: 048
     Dates: start: 20170929, end: 20180426
  5. ALBUMIN [Concomitant]
     Active Substance: ALBUMIN HUMAN
     Dosage: 50 ML, UNK
     Route: 042
     Dates: start: 20170522, end: 20170522
  6. ANAGRELIDE. [Concomitant]
     Active Substance: ANAGRELIDE HYDROCHLORIDE
     Dosage: 1 MG, UNK
     Route: 048
     Dates: start: 20170704, end: 20170905
  7. DIPHENHYDRAMINE HCL [Concomitant]
     Active Substance: DIPHENHYDRAMINE HYDROCHLORIDE
     Indication: PROPHYLAXIS
     Dosage: 30 MG, UNK
     Route: 042
     Dates: start: 20170808, end: 20170808
  8. DIPHENHYDRAMINE HCL [Concomitant]
     Active Substance: DIPHENHYDRAMINE HYDROCHLORIDE
     Dosage: 30 MG, UNK
     Route: 042
     Dates: start: 20170822, end: 20170822
  9. FAMOTIDINE. [Concomitant]
     Active Substance: FAMOTIDINE
     Indication: GASTROOESOPHAGEAL REFLUX DISEASE
     Dosage: 20 MG, UNK
     Route: 048
     Dates: start: 20170614, end: 20170619
  10. METOPROLOL SUCCINATE. [Concomitant]
     Active Substance: METOPROLOL SUCCINATE
     Dosage: 100 MG, UNK
     Route: 048
     Dates: start: 20180522
  11. NEXIUM [Concomitant]
     Active Substance: ESOMEPRAZOLE MAGNESIUM
     Indication: GASTROOESOPHAGEAL REFLUX DISEASE
     Dosage: 40 MG, UNK
     Route: 042
     Dates: start: 20170514, end: 20170518
  12. SOMATOSTATIN [Concomitant]
     Active Substance: SOMATOSTATIN
     Indication: HAEMORRHAGE
     Dosage: 6 MG, UNK
     Route: 042
     Dates: start: 20170514, end: 20170518
  13. VALACYCLOVIR HCL [Concomitant]
     Active Substance: VALACYCLOVIR HYDROCHLORIDE
     Indication: HERPES ZOSTER
     Dosage: 1000 MG, UNK
     Route: 048
     Dates: start: 20170524, end: 20170526
  14. AMIODARONE [Concomitant]
     Active Substance: AMIODARONE
     Indication: PRODUCT USED FOR UNKNOWN INDICATION
     Route: 065
  15. JAKAVI [Suspect]
     Active Substance: RUXOLITINIB
     Dosage: 20 MG, UNK
     Route: 048
     Dates: start: 20180427, end: 20180428
  16. JAKAVI [Suspect]
     Active Substance: RUXOLITINIB
     Dosage: 20 MG, UNK
     Route: 048
     Dates: start: 20180508, end: 20180531
  17. ALBUMIN [Concomitant]
     Active Substance: ALBUMIN HUMAN
     Dosage: 20 G, UNK
     Route: 042
     Dates: start: 20180426, end: 20180429
  18. DIPHENHYDRAMINE HCL [Concomitant]
     Active Substance: DIPHENHYDRAMINE HYDROCHLORIDE
     Dosage: 30 MG, UNK
     Route: 042
     Dates: start: 20180116, end: 20180117
  19. DIPHENHYDRAMINE HCL [Concomitant]
     Active Substance: DIPHENHYDRAMINE HYDROCHLORIDE
     Dosage: 30 MG, UNK
     Route: 042
     Dates: start: 20180130, end: 20180131
  20. FAKTU [Concomitant]
     Indication: HAEMORRHOIDAL HAEMORRHAGE
     Dosage: 1 DF, UNK
     Route: 065
     Dates: start: 20180213, end: 20180426
  21. FAMOTIDINE. [Concomitant]
     Active Substance: FAMOTIDINE
     Dosage: 20 MG, UNK
     Route: 048
     Dates: start: 20170917, end: 20170917
  22. FEBUXOSTAT. [Concomitant]
     Active Substance: FEBUXOSTAT
     Indication: HYPERURICAEMIA
     Dosage: 40 MG, UNK
     Route: 048
     Dates: start: 20170523, end: 20170704
  23. SERTACONAZOLE NITRATE [Concomitant]
     Active Substance: SERTACONAZOLE NITRATE
     Indication: HERPES ZOSTER
     Dosage: 1 DF, UNK
     Route: 061
     Dates: start: 20170609, end: 20170704
  24. SOLU-CORTEF [Concomitant]
     Active Substance: HYDROCORTISONE SODIUM SUCCINATE
     Dosage: 100 MG, UNK
     Route: 042
     Dates: start: 20180428, end: 20180429
  25. ULTRACET [Concomitant]
     Active Substance: ACETAMINOPHEN\TRAMADOL HYDROCHLORIDE
     Indication: PROPHYLAXIS
     Dosage: 1 DF, UNK
     Route: 048
     Dates: start: 20170718, end: 20170724
  26. JAKAVI [Suspect]
     Active Substance: RUXOLITINIB
     Indication: MYELOFIBROSIS
     Dosage: 20 MG, UNK
     Route: 048
     Dates: start: 20170704, end: 20170717
  27. EXJADE [Concomitant]
     Active Substance: DEFERASIROX
     Dosage: 1000 MG, UNK
     Route: 048
     Dates: start: 20171129, end: 20180116
  28. FUROSEMIDE. [Concomitant]
     Active Substance: FUROSEMIDE
     Dosage: 40 MG, UNK
     Route: 048
     Dates: start: 20170606, end: 20170616
  29. SOLU-CORTEF [Concomitant]
     Active Substance: HYDROCORTISONE SODIUM SUCCINATE
     Dosage: 100 MG, UNK
     Route: 042
     Dates: start: 20170905, end: 20170905
  30. SOLU-CORTEF [Concomitant]
     Active Substance: HYDROCORTISONE SODIUM SUCCINATE
     Dosage: 100 MG, UNK
     Route: 042
     Dates: start: 20180427, end: 20180428
  31. SOLU-CORTEF [Concomitant]
     Active Substance: HYDROCORTISONE SODIUM SUCCINATE
     Dosage: 100 MG, UNK
     Route: 042
     Dates: start: 20180506, end: 20180506
  32. TETRACYCLINE HCL [Concomitant]
     Active Substance: TETRACYCLINE HYDROCHLORIDE
     Dosage: 1 DF, UNK
     Route: 061
     Dates: start: 20171219, end: 20180102
  33. VALTREX [Concomitant]
     Active Substance: VALACYCLOVIR HYDROCHLORIDE
     Indication: HERPES ZOSTER
     Dosage: 1000 MG, UNK
     Route: 048
     Dates: start: 20170704, end: 20170711
  34. JAKAVI [Suspect]
     Active Substance: RUXOLITINIB
     Dosage: 40 MG, UNK
     Route: 048
     Dates: start: 20170718, end: 20171204
  35. ALBUMIN [Concomitant]
     Active Substance: ALBUMIN HUMAN
     Dosage: 50 ML, UNK
     Route: 042
     Dates: start: 20170523, end: 20170524
  36. ANAGRELIDE. [Concomitant]
     Active Substance: ANAGRELIDE HYDROCHLORIDE
     Dosage: 1 MG, UNK
     Route: 048
     Dates: start: 20170606, end: 20170704
  37. APROVEL [Concomitant]
     Active Substance: IRBESARTAN
     Dosage: 150 MG, UNK
     Route: 048
     Dates: start: 20170520, end: 20170522
  38. BETALOC [Concomitant]
     Active Substance: METOPROLOL TARTRATE
     Indication: HAEMORRHOIDAL HAEMORRHAGE
     Dosage: 100 MG, UNK
     Route: 048
     Dates: start: 20180501, end: 20180517
  39. DIPHENHYDRAMINE HCL [Concomitant]
     Active Substance: DIPHENHYDRAMINE HYDROCHLORIDE
     Dosage: 30 MG, UNK
     Route: 042
     Dates: start: 20171205, end: 20171206
  40. FEBURIC [Concomitant]
     Active Substance: FEBUXOSTAT
     Indication: HYPERURICAEMIA
     Dosage: 80 MG, UNK
     Route: 048
     Dates: start: 20180116, end: 20180426
  41. FENTANYL CITRATE. [Concomitant]
     Active Substance: FENTANYL CITRATE
     Indication: PAIN PROPHYLAXIS
     Dosage: 0.5 MG, UNK
     Route: 042
     Dates: start: 20170514, end: 20170516
  42. METOCLOPRAMIDE HCL [Concomitant]
     Active Substance: METOCLOPRAMIDE HYDROCHLORIDE
     Indication: ABDOMINAL DISTENSION
     Dosage: 10 MG, UNK
     Route: 042
     Dates: start: 20170521, end: 20170521
  43. PREGABALIN. [Concomitant]
     Active Substance: PREGABALIN
     Dosage: 150 MG, UNK
     Route: 048
     Dates: start: 20170607, end: 20170717
  44. SOLU-CORTEF [Concomitant]
     Active Substance: HYDROCORTISONE SODIUM SUCCINATE
     Dosage: 100 MG, UNK
     Route: 042
     Dates: start: 20171205
  45. SOLU-CORTEF [Concomitant]
     Active Substance: HYDROCORTISONE SODIUM SUCCINATE
     Dosage: 100 MG, UNK
     Route: 042
     Dates: start: 20180213, end: 20180213
  46. SOLU-MEDROL [Concomitant]
     Active Substance: METHYLPREDNISOLONE SODIUM SUCCINATE
     Indication: PROPHYLAXIS
     Dosage: 40 MG, UNK
     Route: 042
     Dates: start: 20170915, end: 20170916
  47. ZINC OXIDE. [Concomitant]
     Active Substance: ZINC OXIDE
     Indication: DECUBITUS ULCER
     Dosage: 1 DF, UNK
     Route: 061
     Dates: start: 20180505, end: 20180526
  48. ALBUMIN [Concomitant]
     Active Substance: ALBUMIN HUMAN
     Dosage: 50 ML, UNK
     Route: 042
     Dates: start: 20170518, end: 20170520
  49. ALBUMIN [Concomitant]
     Active Substance: ALBUMIN HUMAN
     Dosage: 50 ML, UNK
     Route: 042
     Dates: start: 20170606, end: 20170608
  50. APROVEL [Concomitant]
     Active Substance: IRBESARTAN
     Indication: HYPERTENSION
     Dosage: 150 MG, UNK
     Route: 048
     Dates: start: 20170510, end: 20170515
  51. BENAZON [Concomitant]
     Indication: HAEMORRHOIDAL HAEMORRHAGE
     Dosage: 1 DF, UNK
     Route: 061
     Dates: start: 20180130, end: 20180212
  52. CEFTRIAXONE SODIUM. [Concomitant]
     Active Substance: CEFTRIAXONE SODIUM
     Indication: BACTERAEMIA
     Dosage: 1000 MG, UNK
     Route: 042
     Dates: start: 20170519, end: 20170530
  53. DEXTROMETHORPHAN HYDROBROMIDE. [Concomitant]
     Active Substance: DEXTROMETHORPHAN HYDROBROMIDE
     Indication: COUGH
     Dosage: UNK
     Route: 048
     Dates: start: 20170517, end: 20170524
  54. DIPHENHYDRAMINE HCL [Concomitant]
     Active Substance: DIPHENHYDRAMINE HYDROCHLORIDE
     Dosage: 30 MG, UNK
     Route: 042
     Dates: start: 20180410, end: 20180410
  55. FUROSEMIDE. [Concomitant]
     Active Substance: FUROSEMIDE
     Dosage: 40 MG, UNK
     Route: 042
     Dates: start: 20180511, end: 20180511
  56. TOFRANIL [Concomitant]
     Active Substance: IMIPRAMINE HYDROCHLORIDE
     Indication: PROPHYLAXIS
     Dosage: 10 MG, UNK
     Route: 048
     Dates: start: 20170606, end: 20170724
  57. NEXIUM [Concomitant]
     Active Substance: ESOMEPRAZOLE MAGNESIUM
     Dosage: 40 MG, UNK
     Route: 048
     Dates: start: 20180511, end: 20180531
  58. ADALAT [Concomitant]
     Active Substance: NIFEDIPINE
     Indication: HYPERTENSION
     Dosage: 30 MG, UNK
     Route: 048
     Dates: start: 20170521, end: 20180426
  59. PREGABALIN. [Concomitant]
     Active Substance: PREGABALIN
     Indication: HERPES ZOSTER
     Dosage: 75 MG, UNK
     Route: 048
     Dates: start: 20170531, end: 20170606
  60. SOLU-CORTEF [Concomitant]
     Active Substance: HYDROCORTISONE SODIUM SUCCINATE
     Dosage: 100 MG, UNK
     Route: 042
     Dates: start: 20180102, end: 20180102
  61. SPIRONOLACTONE. [Concomitant]
     Active Substance: SPIRONOLACTONE
     Indication: HYPERTENSION
     Dosage: 50 MG, UNK
     Route: 048
     Dates: start: 20170522, end: 20170524
  62. TETRACYCLINE HCL [Concomitant]
     Active Substance: TETRACYCLINE HYDROCHLORIDE
     Indication: HERPES ZOSTER
     Dosage: 1 DF, UNK
     Route: 061
     Dates: start: 20170514, end: 20170704
  63. TETRACYCLINE HCL [Concomitant]
     Active Substance: TETRACYCLINE HYDROCHLORIDE
     Dosage: 1 DF, UNK
     Route: 061
     Dates: start: 20170822, end: 20170828
  64. DIMETHICONE. [Concomitant]
     Active Substance: DIMETHICONE
     Dosage: 40 MG, UNK
     Route: 048
     Dates: start: 20170916, end: 20170918
  65. DIPHENHYDRAMINE HCL [Concomitant]
     Active Substance: DIPHENHYDRAMINE HYDROCHLORIDE
     Dosage: 30 MG, UNK
     Route: 042
     Dates: start: 20170915, end: 20170919
  66. DIPHENHYDRAMINE HCL [Concomitant]
     Active Substance: DIPHENHYDRAMINE HYDROCHLORIDE
     Dosage: 30 MG, UNK
     Route: 042
     Dates: start: 20180323, end: 20180324
  67. EXJADE [Concomitant]
     Active Substance: DEFERASIROX
     Indication: HYPERFERRITINAEMIA
     Dosage: 1000 MG, UNK
     Route: 048
     Dates: start: 20171114, end: 20171128
  68. EXJADE [Concomitant]
     Active Substance: DEFERASIROX
     Dosage: 1000 MG, UNK
     Route: 048
     Dates: start: 20180424, end: 20180426
  69. FUROSEMIDE. [Concomitant]
     Active Substance: FUROSEMIDE
     Indication: PROPHYLAXIS
     Dosage: 40 MG, UNK
     Route: 048
     Dates: start: 20170519, end: 20170519
  70. FUROSEMIDE. [Concomitant]
     Active Substance: FUROSEMIDE
     Dosage: 40 MG, UNK
     Route: 042
     Dates: start: 20170520, end: 20170522
  71. FUROSEMIDE. [Concomitant]
     Active Substance: FUROSEMIDE
     Dosage: 40 MG, UNK
     Route: 048
     Dates: start: 20170620, end: 20170704
  72. HYDRALAZINE HCL [Concomitant]
     Active Substance: HYDRALAZINE HYDROCHLORIDE
     Indication: HYPERTENSION
     Dosage: 10 MG, UNK
     Route: 048
     Dates: start: 20170520, end: 20170521
  73. HYDROXYUREA. [Concomitant]
     Active Substance: HYDROXYUREA
     Indication: PRIMARY MYELOFIBROSIS
     Dosage: 500 MG, UNK
     Route: 048
     Dates: start: 20170605, end: 20170920
  74. METOCLOPRAMIDE HCL [Concomitant]
     Active Substance: METOCLOPRAMIDE HYDROCHLORIDE
     Dosage: 10 MG, UNK
     Route: 042
     Dates: start: 20170523, end: 20170524
  75. NEXIUM [Concomitant]
     Active Substance: ESOMEPRAZOLE MAGNESIUM
     Dosage: 40 MG, UNK
     Route: 042
     Dates: start: 20170526, end: 20170614
  76. SOLU-CORTEF [Concomitant]
     Active Substance: HYDROCORTISONE SODIUM SUCCINATE
     Indication: PROPHYLAXIS
     Dosage: 100 MG, UNK
     Route: 048
     Dates: start: 20170801, end: 20170801
  77. SOLU-CORTEF [Concomitant]
     Active Substance: HYDROCORTISONE SODIUM SUCCINATE
     Dosage: 100 MG, UNK
     Route: 042
     Dates: start: 20170515, end: 20170524
  78. SOLU-CORTEF [Concomitant]
     Active Substance: HYDROCORTISONE SODIUM SUCCINATE
     Dosage: 100 MG, UNK
     Route: 042
     Dates: start: 20170905, end: 20170905
  79. SOLU-CORTEF [Concomitant]
     Active Substance: HYDROCORTISONE SODIUM SUCCINATE
     Dosage: 100 MG, UNK
     Route: 042
     Dates: start: 20180323, end: 20180324
  80. SUCRALFATE. [Concomitant]
     Active Substance: SUCRALFATE
     Indication: GASTROOESOPHAGEAL REFLUX DISEASE
     Dosage: 1 DF, UNK
     Route: 048
     Dates: start: 20170922, end: 20170930
  81. VALTREX [Concomitant]
     Active Substance: VALACYCLOVIR HYDROCHLORIDE
     Dosage: 1000 MG, UNK
     Route: 048
     Dates: start: 20171219, end: 20180116
  82. JAKAVI [Suspect]
     Active Substance: RUXOLITINIB
     Dosage: 10 MG, UNK
     Route: 048
     Dates: start: 20180429, end: 20180429
  83. AGRYLIN [Concomitant]
     Active Substance: ANAGRELIDE HYDROCHLORIDE
     Indication: PRIMARY MYELOFIBROSIS
     Dosage: 1.5 MG, UNK
     Route: 048
     Dates: start: 20170906, end: 20170920
  84. ALBUMIN [Concomitant]
     Active Substance: ALBUMIN HUMAN
     Indication: HYPOALBUMINAEMIA
     Dosage: 50 ML, UNK
     Route: 042
     Dates: start: 20170514, end: 20170515
  85. ANAGRELIDE. [Concomitant]
     Active Substance: ANAGRELIDE HYDROCHLORIDE
     Indication: PRIMARY MYELOFIBROSIS
     Dosage: 1 MG, UNK
     Route: 048
     Dates: start: 20170602, end: 20170605
  86. CHLORHEXIDINE GLUCONATE. [Concomitant]
     Active Substance: CHLORHEXIDINE GLUCONATE
     Indication: PROPHYLAXIS
     Dosage: 20 ML, UNK
     Dates: start: 20170514, end: 20170524
  87. DERMOVATE [Concomitant]
     Active Substance: CLOBETASOL
     Indication: HERPES ZOSTER
     Dosage: 1 DF, UNK
     Route: 061
     Dates: start: 20170808, end: 20170822
  88. DIMETHICONE. [Concomitant]
     Active Substance: DIMETHICONE
     Indication: ABDOMINAL DISTENSION
     Dosage: 40 MG, UNK
     Route: 048
     Dates: start: 20170517, end: 20170524
  89. FUROSEMIDE. [Concomitant]
     Active Substance: FUROSEMIDE
     Dosage: 40 MG, UNK
     Route: 042
     Dates: start: 20170523, end: 20170602
  90. METOPROLOL SUCCINATE. [Concomitant]
     Active Substance: METOPROLOL SUCCINATE
     Indication: HYPERTENSION
     Dosage: 200 MG, UNK
     Route: 048
     Dates: start: 20170521, end: 20170521
  91. NEXIUM [Concomitant]
     Active Substance: ESOMEPRAZOLE MAGNESIUM
     Dosage: 40 MG, UNK
     Route: 048
     Dates: start: 20170620, end: 20180426
  92. NEXIUM [Concomitant]
     Active Substance: ESOMEPRAZOLE MAGNESIUM
     Dosage: 40 MG, UNK
     Route: 042
     Dates: start: 20180427, end: 20180503
  93. SOLU-CORTEF [Concomitant]
     Active Substance: HYDROCORTISONE SODIUM SUCCINATE
     Dosage: 100 MG, UNK
     Route: 042
     Dates: start: 20180130, end: 20180131
  94. SPIRONOLACTONE. [Concomitant]
     Active Substance: SPIRONOLACTONE
     Dosage: 25 MG, UNK
     Route: 048
     Dates: start: 20170606, end: 20170611
  95. JAKAVI [Suspect]
     Active Substance: RUXOLITINIB
     Dosage: 20 MG, UNK
     Route: 048
     Dates: start: 20171205, end: 20180129
  96. CALCIUM CHLORIDE. [Concomitant]
     Active Substance: CALCIUM CHLORIDE
     Indication: HYPOCALCAEMIA
     Dosage: 10.8 MEQ, UNK
     Route: 042
     Dates: start: 20170515, end: 20170515
  97. CALCIUM CHLORIDE. [Concomitant]
     Active Substance: CALCIUM CHLORIDE
     Dosage: 5.4 MEQ, UNK
     Route: 042
     Dates: start: 20170521, end: 20170524
  98. DIMETHICONE. [Concomitant]
     Active Substance: DIMETHICONE
     Dosage: 40 MG, UNK
     Route: 048
     Dates: start: 20180507, end: 20180510
  99. DIPHENHYDRAMINE HCL [Concomitant]
     Active Substance: DIPHENHYDRAMINE HYDROCHLORIDE
     Dosage: 30 MG, UNK
     Route: 042
     Dates: start: 20171114, end: 20171115
  100. DIPHENHYDRAMINE HCL [Concomitant]
     Active Substance: DIPHENHYDRAMINE HYDROCHLORIDE
     Dosage: 30 MG, UNK
     Route: 042
     Dates: start: 20180213, end: 20180213
  101. DIPHENHYDRAMINE HCL [Concomitant]
     Active Substance: DIPHENHYDRAMINE HYDROCHLORIDE
     Dosage: 30 MG, UNK
     Route: 042
     Dates: start: 20180426, end: 20180521
  102. DOXAZOSIN MESYLATE. [Concomitant]
     Active Substance: DOXAZOSIN MESYLATE
     Indication: HYPERTENSION
     Dosage: 1 MG, UNK
     Route: 048
     Dates: start: 20170520, end: 20170521
  103. MAGNESIUM SULFATE. [Concomitant]
     Active Substance: MAGNESIUM SULFATE
     Indication: HYPOMAGNESAEMIA
     Dosage: 32 MEQ, UNK
     Route: 042
     Dates: start: 20170529, end: 20170529
  104. METOPROLOL SUCCINATE. [Concomitant]
     Active Substance: METOPROLOL SUCCINATE
     Dosage: UNK
     Route: 048
     Dates: end: 20180517
  105. NORVASC [Concomitant]
     Active Substance: AMLODIPINE BESYLATE
     Indication: HYPERTENSION
     Dosage: 5 MG, UNK
     Route: 048
     Dates: start: 20170517, end: 20170520
  106. XARELTO [Concomitant]
     Active Substance: RIVAROXABAN
     Indication: THROMBOSIS
     Dosage: 10 MG, UNK
     Route: 048
     Dates: start: 20170620, end: 20170920
  107. ZALAIN [Concomitant]
     Active Substance: SERTACONAZOLE NITRATE
     Indication: HERPES ZOSTER
     Dosage: 1 DF, UNK
     Route: 061
     Dates: start: 20170808, end: 20170828

REACTIONS (19)
  - Pyrexia [Recovered/Resolved]
  - Bilirubin conjugated increased [Unknown]
  - Hepatic failure [Fatal]
  - Oesophageal varices haemorrhage [Unknown]
  - Blood creatinine increased [Not Recovered/Not Resolved]
  - Chromaturia [Unknown]
  - Urinary tract infection [Not Recovered/Not Resolved]
  - Fatigue [Unknown]
  - Hypoalbuminaemia [Not Recovered/Not Resolved]
  - Hypokalaemia [Fatal]
  - Jaundice [Unknown]
  - Nausea [Unknown]
  - Aspartate aminotransferase increased [Unknown]
  - Pyrexia [Not Recovered/Not Resolved]
  - Blood bilirubin increased [Not Recovered/Not Resolved]
  - Myelofibrosis [Fatal]
  - Alanine aminotransferase increased [Unknown]
  - Pyrexia [Recovered/Resolved]
  - Oedema peripheral [Unknown]

NARRATIVE: CASE EVENT DATE: 20170904
